FAERS Safety Report 16250660 (Version 1)
Quarter: 2019Q2

REPORT INFORMATION
  Report Type: Spontaneous
  Country: CA (occurrence: CA)
  Receive Date: 20190429
  Receipt Date: 20190429
  Transmission Date: 20190711
  Serious: Yes (Other)
  Sender: FDA-Public Use
  Company Number: CA-CELGENEUS-CAN-20190408547

PATIENT
  Sex: Female

DRUGS (2)
  1. SORIATANE [Concomitant]
     Active Substance: ACITRETIN
     Indication: PRODUCT USED FOR UNKNOWN INDICATION
     Route: 048
     Dates: end: 20181201
  2. OTEZLA [Suspect]
     Active Substance: APREMILAST
     Indication: ORAL LICHEN PLANUS
     Dosage: 60 MILLIGRAM
     Route: 048
     Dates: start: 20181221

REACTIONS (1)
  - Neoplasm [Not Recovered/Not Resolved]
